FAERS Safety Report 18905226 (Version 2)
Quarter: 2021Q2

REPORT INFORMATION
  Report Type: Spontaneous
  Country: GB (occurrence: GB)
  Receive Date: 20210217
  Receipt Date: 20210614
  Transmission Date: 20210717
  Serious: Yes (Death, Other)
  Sender: FDA-Public Use
  Company Number: GB-SAMSUNG BIOEPIS-SB-2021-03238

PATIENT
  Age: 61 Year
  Sex: Female

DRUGS (78)
  1. TRASTUZUMAB. [Suspect]
     Active Substance: TRASTUZUMAB
     Indication: HER2 POSITIVE BREAST CANCER
     Dosage: 300 MILLIGRAM, Q3W (DOSE MODIFIED)
     Route: 042
     Dates: start: 20150629, end: 20151102
  2. TRASTUZUMAB. [Suspect]
     Active Substance: TRASTUZUMAB
     Dosage: 140 MILLIGRAM, Q3W
     Route: 065
     Dates: start: 20151201, end: 20160215
  3. TRASTUZUMAB. [Suspect]
     Active Substance: TRASTUZUMAB
     Dosage: 300 MILLIGRAM, Q3W
     Route: 065
  4. CAPECITABINE. [Suspect]
     Active Substance: CAPECITABINE
     Dosage: 3000 MILLIGRAM, BID
     Route: 065
     Dates: start: 20170210, end: 20170728
  5. PERTUZUMAB. [Suspect]
     Active Substance: PERTUZUMAB
     Dosage: 840 MILLIGRAM, Q3W (1 DF)
     Route: 065
  6. DOMPERIDONE [Concomitant]
     Active Substance: DOMPERIDONE
     Indication: PRODUCT USED FOR UNKNOWN INDICATION
     Route: 048
     Dates: start: 20160406, end: 20160421
  7. FILGRASTIM [Concomitant]
     Active Substance: FILGRASTIM
     Indication: PRODUCT USED FOR UNKNOWN INDICATION
     Dosage: 300 MICROGRAM, QD
     Route: 058
     Dates: start: 20150725, end: 20150730
  8. GRANULOCYTE COLONY STIMULATING FACTOR [Concomitant]
     Active Substance: GRANULOCYTE COLONY-STIMULATING FACTOR NOS
     Indication: PRODUCT USED FOR UNKNOWN INDICATION
     Dosage: 300 MICROGRAM, (QD FOR 3 DAYS STARTING ON DAY 3 AND 11) RECEIVED 300 MCG FROM 25?JUL?2015
     Route: 065
     Dates: start: 20160421, end: 20160721
  9. TRASTUZUMAB. [Suspect]
     Active Substance: TRASTUZUMAB
     Dosage: 172 MILLIGRAM, Q3W
     Route: 042
     Dates: start: 20151201, end: 20151221
  10. TRASTUZUMAB. [Suspect]
     Active Substance: TRASTUZUMAB
     Dosage: 140 MILLIGRAM, Q3W
     Route: 042
     Dates: start: 20160215, end: 20160215
  11. TRASTUZUMAB. [Suspect]
     Active Substance: TRASTUZUMAB
     Dosage: UNKNOWN, Q3W, DOSE REDUCED
     Route: 042
  12. TRASTUZUMAB. [Suspect]
     Active Substance: TRASTUZUMAB
     Dosage: 350 MILLIGRAM (350 MILLIGRAM, UNKNOWN, LOADING DOSE)
     Route: 065
     Dates: start: 20150601
  13. TRASTUZUMAB EMTANSINE [Suspect]
     Active Substance: ADO-TRASTUZUMAB EMTANSINE
     Dosage: 172 MILLIGRAM, Q3W
     Route: 042
     Dates: start: 20151201, end: 20151221
  14. TRASTUZUMAB EMTANSINE [Suspect]
     Active Substance: ADO-TRASTUZUMAB EMTANSINE
     Dosage: 140 MILLIGRAM, Q3W
     Route: 042
     Dates: start: 20151201, end: 20160215
  15. DOCETAXEL. [Suspect]
     Active Substance: DOCETAXEL
     Indication: HER2 POSITIVE BREAST CANCER
     Dosage: 108 MILLIGRAM, Q3W
     Route: 042
  16. DOCETAXEL. [Suspect]
     Active Substance: DOCETAXEL
     Dosage: 108 MILLIGRAM, Q3W,DOSE MODIFIED
     Route: 042
     Dates: start: 20150602, end: 20150602
  17. FOLIC ACID. [Concomitant]
     Active Substance: FOLIC ACID
     Indication: BLOOD FOLATE DECREASED
     Dosage: 5 MILLIGRAM, QD
     Route: 048
     Dates: start: 20150828, end: 201708
  18. TRASTUZUMAB EMTANSINE [Suspect]
     Active Substance: ADO-TRASTUZUMAB EMTANSINE
     Dosage: 140 MILLIGRAM, Q3W
     Route: 042
     Dates: start: 20160215, end: 20160215
  19. TRASTUZUMAB EMTANSINE [Suspect]
     Active Substance: ADO-TRASTUZUMAB EMTANSINE
     Dosage: 140 MILLIGRAM, Q3W
     Route: 042
  20. NERATINIB [Suspect]
     Active Substance: NERATINIB
     Dosage: 40 MILLIGRAM
     Route: 065
  21. CAPECITABINE. [Suspect]
     Active Substance: CAPECITABINE
     Indication: HER2 POSITIVE BREAST CANCER
     Dosage: 1500 MILLIGRAM, QD
     Route: 048
     Dates: start: 20170210, end: 20170728
  22. VINORELBINE [Suspect]
     Active Substance: VINORELBINE TARTRATE
     Dosage: 60 MILLIGRAM
     Route: 048
     Dates: start: 20180608, end: 20180810
  23. VINORELBINE [Suspect]
     Active Substance: VINORELBINE TARTRATE
     Route: 065
     Dates: start: 20180530, end: 20180608
  24. CIPROFLOXACIN. [Concomitant]
     Active Substance: CIPROFLOXACIN
     Indication: PRODUCT USED FOR UNKNOWN INDICATION
     Dosage: 500 MILLIGRAM, QD
     Route: 048
     Dates: start: 20151218, end: 20151225
  25. CIPROFLOXACIN. [Concomitant]
     Active Substance: CIPROFLOXACIN
     Dosage: 1000 MILLIGRAM, QD
     Route: 048
     Dates: start: 20151218, end: 20151225
  26. MUPIROCIN. [Concomitant]
     Active Substance: MUPIROCIN
     Indication: PROPHYLAXIS
     Dosage: 2 PERCENT, QD
     Route: 061
     Dates: start: 20160620, end: 20160624
  27. LOPERAMIDE [Concomitant]
     Active Substance: LOPERAMIDE
     Indication: DIARRHOEA
     Dosage: 2 MILLIGRAM, PRN
     Route: 048
     Dates: start: 20170901, end: 20171124
  28. LOPERAMIDE [Concomitant]
     Active Substance: LOPERAMIDE
     Dosage: UNKNOWN
     Route: 048
     Dates: start: 20170901, end: 20171124
  29. FILGRASTIM [Concomitant]
     Active Substance: FILGRASTIM
     Dosage: EVERY DAY FOR THREE DAYS STARTING ON DAYS THREE AND 11
     Route: 058
     Dates: start: 20160421, end: 20160712
  30. TRASTUZUMAB. [Suspect]
     Active Substance: TRASTUZUMAB
     Dosage: 1 DOSAGE FORM, Q3W,DOSE REDUCED
     Route: 042
  31. TRASTUZUMAB. [Suspect]
     Active Substance: TRASTUZUMAB
     Dosage: 300 MILLIGRAM, Q3W (DOSE MODIFIED)
     Route: 042
  32. TRASTUZUMAB EMTANSINE [Suspect]
     Active Substance: ADO-TRASTUZUMAB EMTANSINE
     Dosage: 172 MILLIGRAM, Q3W
     Route: 042
     Dates: start: 20151201
  33. NERATINIB [Suspect]
     Active Substance: NERATINIB
     Dosage: UNKNOWN
     Route: 065
  34. DOCETAXEL. [Suspect]
     Active Substance: DOCETAXEL
     Indication: BREAST CANCER METASTATIC
     Dosage: 86 MILLIGRAM, Q3W, DOSE DISCONTINUED, THREE WEEK
     Route: 042
     Dates: start: 20150629, end: 20150720
  35. CAPECITABINE. [Suspect]
     Active Substance: CAPECITABINE
     Indication: BREAST CANCER METASTATIC
     Dosage: 1500 MILLIGRAM, BID
     Route: 048
  36. VINORELBINE [Suspect]
     Active Substance: VINORELBINE TARTRATE
     Indication: HER2 POSITIVE BREAST CANCER
     Dosage: 60 MILLIGRAM
     Route: 048
  37. ERIBULIN MESILATE [Suspect]
     Active Substance: ERIBULIN
     Dosage: 1.5 MILLIGRAM, Q3W
     Route: 042
     Dates: start: 20160411, end: 20160624
  38. FOLIC ACID. [Concomitant]
     Active Substance: FOLIC ACID
     Dosage: 5 MILLIGRAM, QD
     Route: 065
     Dates: start: 20150828
  39. IRRADIATED RED BLOOD CELLS?LEUKOCYTES REDUCED [Concomitant]
     Active Substance: HUMAN RED BLOOD CELL
     Dosage: TWO UNIT
     Route: 042
     Dates: start: 20180526, end: 20180526
  40. GENTAMICIN. [Concomitant]
     Active Substance: GENTAMICIN
     Indication: LOWER RESPIRATORY TRACT INFECTION
     Dosage: UNKNOWN
     Route: 042
     Dates: start: 20170213, end: 201702
  41. TRASTUZUMAB. [Suspect]
     Active Substance: TRASTUZUMAB
     Dosage: 350 MILLIGRAM, LOADING DOSE
     Route: 042
     Dates: start: 20150601, end: 20150601
  42. TRASTUZUMAB EMTANSINE [Suspect]
     Active Substance: ADO-TRASTUZUMAB EMTANSINE
     Indication: BREAST CANCER METASTATIC
     Dosage: INFUSION, SOLUTION
     Route: 042
  43. NERATINIB [Suspect]
     Active Substance: NERATINIB
     Dosage: 40 MILLIGRAM, QD
     Route: 065
     Dates: start: 20170901
  44. DOCETAXEL. [Suspect]
     Active Substance: DOCETAXEL
     Route: 065
     Dates: start: 20150629
  45. AMLODIPINE [Concomitant]
     Active Substance: AMLODIPINE BESYLATE
     Indication: PRODUCT USED FOR UNKNOWN INDICATION
     Route: 048
  46. SANDO K [Concomitant]
     Dosage: 1 DOSAGE FORM QD (2 TABLETS EVERY DAY)
     Route: 065
     Dates: start: 20150828, end: 20150830
  47. IRRADIATED RED BLOOD CELLS?LEUKOCYTES REDUCED [Concomitant]
     Active Substance: HUMAN RED BLOOD CELL
     Indication: PRODUCT USED FOR UNKNOWN INDICATION
     Dosage: TWO UNIT
     Route: 042
     Dates: start: 20160702, end: 20160702
  48. TRASTUZUMAB EMTANSINE [Suspect]
     Active Substance: ADO-TRASTUZUMAB EMTANSINE
     Indication: HER2 POSITIVE BREAST CANCER
     Dosage: INFUSION, SOLUTION
     Route: 042
  49. NERATINIB [Suspect]
     Active Substance: NERATINIB
     Indication: BREAST CANCER METASTATIC
     Dosage: 40 MILLIGRAM, QD
     Route: 048
     Dates: start: 20170901, end: 20180314
  50. NERATINIB [Suspect]
     Active Substance: NERATINIB
     Dosage: 240 MILLIGRAM, QD
     Route: 065
  51. CAPECITABINE. [Suspect]
     Active Substance: CAPECITABINE
     Dosage: 3000 MILLIGRAM, QD
     Route: 065
     Dates: start: 20170210
  52. PERTUZUMAB. [Suspect]
     Active Substance: PERTUZUMAB
     Dosage: 420 MILLIGRAM, Q3W, TARGETED THERAPY
     Route: 042
     Dates: start: 20150622, end: 20151102
  53. PERTUZUMAB. [Suspect]
     Active Substance: PERTUZUMAB
     Dosage: 420 MILLIGRAM, Q3W,TARGETED THERAPY
     Route: 042
  54. ERIBULIN MESILATE [Suspect]
     Active Substance: ERIBULIN
     Indication: BREAST CANCER METASTATIC
     Dosage: UNKNOWN
     Route: 065
  55. SANDO K [Concomitant]
     Indication: NUTRITIONAL SUPPLEMENTATION
     Dosage: 2 TABLETS EVERY DAY
     Route: 048
     Dates: start: 20150828, end: 20150830
  56. TAZOCIN [Concomitant]
     Active Substance: PIPERACILLIN SODIUM\TAZOBACTAM SODIUM
     Indication: LOWER RESPIRATORY TRACT INFECTION
     Dosage: UNKNOWN
     Route: 042
     Dates: start: 20170213, end: 20170215
  57. MUPIROCIN. [Concomitant]
     Active Substance: MUPIROCIN
     Dosage: 6 PERCENT, QD
     Route: 061
     Dates: start: 20160620, end: 20160624
  58. TRASTUZUMAB. [Suspect]
     Active Substance: TRASTUZUMAB
     Indication: BREAST CANCER METASTATIC
     Dosage: LOADING DOSE?INFUSION, SOLUTION
     Route: 042
     Dates: end: 20150601
  59. TRASTUZUMAB. [Suspect]
     Active Substance: TRASTUZUMAB
     Dosage: UNKNOWN, Q3W
     Route: 065
  60. TRASTUZUMAB. [Suspect]
     Active Substance: TRASTUZUMAB
     Dosage: 140 MILLIGRAM, Q3W
     Route: 065
  61. NERATINIB [Suspect]
     Active Substance: NERATINIB
     Dosage: 240 MILLIGRAM, QD
     Route: 065
     Dates: start: 20180223, end: 20180402
  62. NERATINIB [Suspect]
     Active Substance: NERATINIB
     Dosage: 240 MILLIGRAM, QD
     Route: 065
     Dates: start: 20170901, end: 20180216
  63. ERIBULIN MESILATE [Suspect]
     Active Substance: ERIBULIN
     Indication: HER2 POSITIVE BREAST CANCER
     Dosage: 1.5 MILLIGRAM, Q3W
     Route: 042
     Dates: start: 20160411
  64. ERIBULIN MESILATE [Suspect]
     Active Substance: ERIBULIN
     Route: 065
  65. DOMPERIDONE [Concomitant]
     Active Substance: DOMPERIDONE
     Dosage: 30 MILLIGRAM, QD
     Route: 048
     Dates: start: 20160406, end: 20160421
  66. CO?AMOXICLAV [Concomitant]
     Active Substance: AMOXICILLIN\CLAVULANATE POTASSIUM
     Indication: LOWER RESPIRATORY TRACT INFECTION
     Dosage: 1875 MILLIGRAM, QD
     Route: 048
     Dates: start: 20170222, end: 20170228
  67. CO?AMOXICLAV [Concomitant]
     Active Substance: AMOXICILLIN\CLAVULANATE POTASSIUM
     Dosage: 625 MILLIGRAM, QD
     Route: 048
     Dates: start: 20170222, end: 20170228
  68. MUPIROCIN. [Concomitant]
     Active Substance: MUPIROCIN
     Route: 061
     Dates: start: 20160620, end: 20160624
  69. MEROPENEM. [Concomitant]
     Active Substance: MEROPENEM
     Indication: LOWER RESPIRATORY TRACT INFECTION
     Dosage: UNKNOWN
     Route: 042
     Dates: start: 20170215, end: 20170221
  70. ERIBULIN MESYLATE [Suspect]
     Active Substance: ERIBULIN MESYLATE
     Indication: HER2 POSITIVE BREAST CANCER
     Route: 042
  71. NERATINIB [Suspect]
     Active Substance: NERATINIB
     Indication: HER2 POSITIVE BREAST CANCER
     Dosage: 40 MILLIGRAM, QD
     Route: 048
  72. CAPECITABINE. [Suspect]
     Active Substance: CAPECITABINE
     Dosage: 3000 MILLIGRAM, QD
     Route: 048
     Dates: start: 20170210, end: 20170728
  73. VINORELBINE [Suspect]
     Active Substance: VINORELBINE TARTRATE
     Indication: BREAST CANCER METASTATIC
     Dosage: 60 MILLIGRAM
     Route: 048
     Dates: start: 20180503, end: 20180608
  74. PERTUZUMAB. [Suspect]
     Active Substance: PERTUZUMAB
     Indication: BREAST CANCER METASTATIC
     Dosage: 1 DOSAGE FORM, Q3W, UNK, Q3WK, DOSE REDUCED
     Route: 042
  75. PERTUZUMAB. [Suspect]
     Active Substance: PERTUZUMAB
     Indication: HER2 POSITIVE BREAST CANCER
     Dosage: 840 MILLIGRAM,LOADING CASE
     Route: 042
  76. PERTUZUMAB. [Suspect]
     Active Substance: PERTUZUMAB
     Route: 065
  77. ERIBULIN MESILATE [Suspect]
     Active Substance: ERIBULIN
     Dosage: 1.5 MILLIGRAM, Q3W
     Route: 042
  78. DOMPERIDONE [Concomitant]
     Active Substance: DOMPERIDONE
     Dosage: 10 MILLIGRAM, QD
     Route: 048
     Dates: start: 20160406, end: 20160421

REACTIONS (23)
  - Dysphonia [Recovering/Resolving]
  - Condition aggravated [Not Recovered/Not Resolved]
  - Hypoaesthesia [Unknown]
  - Disease progression [Fatal]
  - Pancytopenia [Not Recovered/Not Resolved]
  - Neuropathy peripheral [Recovering/Resolving]
  - Weight decreased [Not Recovered/Not Resolved]
  - Odynophagia [Not Recovered/Not Resolved]
  - Alopecia [Not Recovered/Not Resolved]
  - Dyspepsia [Unknown]
  - Intentional product misuse [Unknown]
  - Fatigue [Recovered/Resolved]
  - Nausea [Recovered/Resolved]
  - Colitis [Not Recovered/Not Resolved]
  - Hyperchlorhydria [Recovered/Resolved]
  - Throat irritation [Not Recovered/Not Resolved]
  - Product use issue [Unknown]
  - Thrombocytopenia [Not Recovered/Not Resolved]
  - Palpitations [Unknown]
  - Decreased appetite [Recovered/Resolved]
  - Neutropenia [Not Recovered/Not Resolved]
  - Tremor [Unknown]
  - Off label use [Unknown]

NARRATIVE: CASE EVENT DATE: 20180525
